FAERS Safety Report 8868878 (Version 1)
Quarter: 2012Q4

REPORT INFORMATION
  Report Type: 
  Country: US (occurrence: US)
  Receive Date: 20121026
  Receipt Date: 20121026
  Transmission Date: 20130627
  Serious: No
  Sender: FDA-Public Use
  Company Number: US-AMGEN-USASP2012048217

PATIENT
  Age: 54 Year
  Sex: Male

DRUGS (6)
  1. ENBREL [Suspect]
     Indication: RHEUMATOID ARTHRITIS
     Dosage: 50 mg, qwk
     Route: 058
     Dates: start: 20111201
  2. ZOCOR [Concomitant]
     Dosage: 20 mg, 3 times/wk
  3. MOTRIN [Concomitant]
     Dosage: 800 mg, tid
     Route: 048
  4. ACETYLSALICYLIC ACID [Concomitant]
     Dosage: 81 mg, prn
  5. METHOTREXATE [Concomitant]
     Dosage: 2.5 mg, qwk, 6 tabs
     Route: 048
  6. TYLENOL PM [Concomitant]
     Dosage: At bedtime

REACTIONS (1)
  - Hernia repair [Unknown]
